FAERS Safety Report 18087470 (Version 1)
Quarter: 2020Q3

REPORT INFORMATION
  Report Type: Spontaneous
  Country: US (occurrence: US)
  Receive Date: 20200729
  Receipt Date: 20200729
  Transmission Date: 20201103
  Serious: No
  Sender: FDA-Public Use
  Company Number: US-JACOBUS PHARMACEUTICAL COMPANY, INC.-2087890

PATIENT
  Age: 58 Year
  Sex: Female

DRUGS (12)
  1. ATORVASTATIN CALCIUM. [Concomitant]
     Active Substance: ATORVASTATIN CALCIUM
  2. IRON [Concomitant]
     Active Substance: IRON
  3. ASPIRIN. [Concomitant]
     Active Substance: ASPIRIN
  4. OMEGA 3 [Concomitant]
     Active Substance: OMEGA-3 FATTY ACIDS
  5. MAGNESIUM GLYCENINATE [Concomitant]
  6. TURMERIC [Concomitant]
     Active Substance: HERBALS\TURMERIC
  7. RUZURGI [Suspect]
     Active Substance: AMIFAMPRIDINE
     Indication: MYASTHENIC SYNDROME
     Route: 048
  8. METHOTREXATE. [Concomitant]
     Active Substance: METHOTREXATE
  9. PREDNISONE. [Concomitant]
     Active Substance: PREDNISONE
  10. XELJANZ [Concomitant]
     Active Substance: TOFACITINIB CITRATE
  11. FOLIC ACID. [Concomitant]
     Active Substance: FOLIC ACID
  12. SYNTHROID [Concomitant]
     Active Substance: LEVOTHYROXINE SODIUM

REACTIONS (1)
  - Treatment noncompliance [None]
